FAERS Safety Report 11779068 (Version 2)
Quarter: 2015Q4

REPORT INFORMATION
  Report Type: Report from Study
  Country: CA (occurrence: CA)
  Receive Date: 20151125
  Receipt Date: 20151204
  Transmission Date: 20160304
  Serious: Yes (Hospitalization)
  Sender: FDA-Public Use
  Company Number: CA-KADMON PHARMACEUTICALS, LLC-KAD201511-004069

PATIENT
  Age: 70 Year
  Sex: Male
  Weight: 90.71 kg

DRUGS (11)
  1. SEROQUEL [Concomitant]
     Active Substance: QUETIAPINE FUMARATE
  2. RIBAVIRIN. [Suspect]
     Active Substance: RIBAVIRIN
     Indication: HEPATITIS C
     Dosage: TABLET
     Route: 048
     Dates: start: 20150904
  3. PANTOLOC [Concomitant]
     Active Substance: PANTOPRAZOLE SODIUM
  4. FLEXERIL [Concomitant]
     Active Substance: CYCLOBENZAPRINE HYDROCHLORIDE
  5. ASA [Concomitant]
     Active Substance: ASPIRIN
  6. HOLKIRA PAK [Suspect]
     Active Substance: DASABUVIR\OMBITASVIR\PARITAPREVIR\RITONAVIR
     Indication: HEPATITIS C
     Dosage: TWO OMBITASVIR/PARITAPREVIR/RITONAVIR 12.5/75/50 MG TABLET QD, ONE DASABUVIR 250 MG TABLET BID
     Route: 048
     Dates: start: 20150904
  7. NICODERM CQ [Concomitant]
     Active Substance: NICOTINE
     Dates: start: 20150727
  8. JANUMET (RISTFOR) [Concomitant]
  9. XANAX [Concomitant]
     Active Substance: ALPRAZOLAM
  10. COVERSYL [Concomitant]
     Active Substance: PERINDOPRIL
  11. NAPROSYN [Concomitant]
     Active Substance: NAPROXEN

REACTIONS (8)
  - Diarrhoea [Unknown]
  - Haemoglobin decreased [Unknown]
  - Campylobacter infection [Unknown]
  - Decreased appetite [Unknown]
  - Dehydration [Unknown]
  - Pallor [Unknown]
  - Fatigue [Unknown]
  - Peripheral swelling [Unknown]

NARRATIVE: CASE EVENT DATE: 20151127
